FAERS Safety Report 23525618 (Version 1)
Quarter: 2024Q1

REPORT INFORMATION
  Report Type: Spontaneous
  Country: US (occurrence: US)
  Receive Date: 20240215
  Receipt Date: 20240215
  Transmission Date: 20240409
  Serious: Yes (Hospitalization, Other)
  Sender: FDA-Public Use
  Company Number: US-SA-SAC20240212000570

PATIENT
  Age: 70 Year
  Sex: Female

DRUGS (2)
  1. SUTIMLIMAB [Suspect]
     Active Substance: SUTIMLIMAB
     Indication: Cold type haemolytic anaemia
     Dosage: UNK
     Route: 041
     Dates: start: 20240116
  2. RITUXIMAB [Concomitant]
     Active Substance: RITUXIMAB
     Dosage: WITH SHORT-LASTING EFFECT
     Dates: start: 202311

REACTIONS (9)
  - Hepatic function abnormal [Unknown]
  - Blood bilirubin increased [Unknown]
  - Bilirubin conjugated increased [Unknown]
  - Alanine aminotransferase increased [Unknown]
  - Aspartate aminotransferase increased [Unknown]
  - Condition aggravated [Unknown]
  - Hepatic encephalopathy [Unknown]
  - Drug-induced liver injury [Unknown]
  - Human rhinovirus test positive [Unknown]

NARRATIVE: CASE EVENT DATE: 20240101
